FAERS Safety Report 17193550 (Version 1)
Quarter: 2019Q4

REPORT INFORMATION
  Report Type: Spontaneous
  Country: DE (occurrence: DE)
  Receive Date: 20191223
  Receipt Date: 20191223
  Transmission Date: 20200122
  Serious: Yes (Hospitalization)
  Sender: FDA-Public Use
  Company Number: DE-ASTRAZENECA-2019SF79673

PATIENT
  Age: 82 Year
  Sex: Male

DRUGS (9)
  1. RIVASTIGMIN [Concomitant]
     Active Substance: RIVASTIGMINE
     Dosage: 4.6 MG/24H, 1-0-0-0
  2. METOPROLOL. [Concomitant]
     Active Substance: METOPROLOL
  3. QUETIAPIN [Suspect]
     Active Substance: QUETIAPINE
     Route: 048
  4. ACETYLSALICYLIC ACID [Suspect]
     Active Substance: ASPIRIN
     Route: 065
  5. BETAHISTIN [Concomitant]
     Active Substance: BETAHISTINE
  6. BENSERAZIDE/LEVODOPA [Concomitant]
     Active Substance: BENSERAZIDE\LEVODOPA
     Dosage: 100|25 MG, 5X
  7. SIMVASTATIN. [Concomitant]
     Active Substance: SIMVASTATIN
  8. BENSERAZIDE/LEVODOPA [Concomitant]
     Active Substance: BENSERAZIDE\LEVODOPA
     Dosage: 100|25 MG, 0-0-0-1
  9. METFORMIN [Concomitant]
     Active Substance: METFORMIN HYDROCHLORIDE

REACTIONS (5)
  - Pallor [Unknown]
  - Anaemia [Unknown]
  - Dehydration [Unknown]
  - General physical health deterioration [Unknown]
  - Aspiration [Unknown]
